FAERS Safety Report 8915127 (Version 1)
Quarter: 2012Q4

REPORT INFORMATION
  Report Type: 
  Country: JP (occurrence: JP)
  Receive Date: 20121119
  Receipt Date: 20121119
  Transmission Date: 20130627
  Serious: Yes (Death)
  Sender: FDA-Public Use
  Company Number: JP-BAXTER-2012BAX023596

PATIENT
  Sex: Male

DRUGS (2)
  1. DIANEAL-N PD-4 1.5 [Suspect]
     Indication: GLOMERULONEPHRITIS
     Route: 033
     Dates: start: 20071024, end: 20121105
  2. DIANEAL-N PD-4 1.5 [Suspect]
     Indication: PERITONEAL LAVAGE

REACTIONS (1)
  - Cardiac failure [Fatal]
